FAERS Safety Report 14853212 (Version 26)
Quarter: 2022Q1

REPORT INFORMATION
  Report Type: Spontaneous
  Country: DE (occurrence: DE)
  Receive Date: 20180507
  Receipt Date: 20220207
  Transmission Date: 20220424
  Serious: Yes (Hospitalization)
  Sender: FDA-Public Use
  Company Number: DE-ADRED-00034-01

PATIENT
  Age: 62 Year
  Sex: Female
  Weight: 45 kg

DRUGS (72)
  1. PANTOZOL [Interacting]
     Active Substance: PANTOPRAZOLE SODIUM
     Dosage: 40 MG, QD (1-0-0-0)
     Route: 048
  2. RAPAMUNE [Interacting]
     Active Substance: SIROLIMUS
     Dosage: 1 MG, QD (1-0-0-0)
     Route: 048
  3. RAPAMUNE [Interacting]
     Active Substance: SIROLIMUS
     Dosage: UNK
     Route: 048
  4. SIMVASTATIN [Interacting]
     Active Substance: SIMVASTATIN
     Dosage: 40 MG,QD (0-0-1-0)
     Route: 048
  5. SPIRIVA [Interacting]
     Active Substance: TIOTROPIUM BROMIDE MONOHYDRATE
     Dosage: 18 UG,BID(1-0-1-0 )
     Route: 055
  6. SPIRIVA [Interacting]
     Active Substance: TIOTROPIUM BROMIDE MONOHYDRATE
     Dosage: 36 UG, QD, 18 UG, BID (1-0-1-0)
     Route: 055
  7. FUROSEMIDE [Interacting]
     Active Substance: FUROSEMIDE
     Dosage: 40 MG,QD
     Route: 048
  8. FUROSEMIDE [Interacting]
     Active Substance: FUROSEMIDE
     Dosage: 160 MG, QD
     Route: 048
  9. FUROSEMIDE [Interacting]
     Active Substance: FUROSEMIDE
     Dosage: 40 MG EVERY 6 HOURS
     Route: 048
  10. BENSERAZIDE\LEVODOPA [Interacting]
     Active Substance: BENSERAZIDE\LEVODOPA
     Dosage: 100 MG, QD(100 MG 1-0-2.5-0)
     Route: 048
  11. BENSERAZIDE\LEVODOPA [Interacting]
     Active Substance: BENSERAZIDE\LEVODOPA
     Dosage: 100 MG, BID
     Route: 048
  12. CHOLECALCIFEROL [Interacting]
     Active Substance: CHOLECALCIFEROL
     Dosage: 100 OT, QD (100 IE, 1-0-0-0)
     Route: 048
  13. CHOLECALCIFEROL [Interacting]
     Active Substance: CHOLECALCIFEROL
     Dosage: UNK UNK, QD
     Route: 048
  14. CHOLECALCIFEROL [Interacting]
     Active Substance: CHOLECALCIFEROL
     Dosage: UNK UNK, QD
     Route: 048
  15. LACTULOSE [Interacting]
     Active Substance: LACTULOSE
     Dosage: 1 DF, QD
     Route: 048
  16. LACTULOSE [Interacting]
     Active Substance: LACTULOSE
     Dosage: 1 DF, QD, 1 MEASURING CUP
     Route: 048
  17. LACTULOSE [Interacting]
     Active Substance: LACTULOSE
     Dosage: UNK UNK, QD
     Route: 048
  18. EZETIMIBE [Interacting]
     Active Substance: EZETIMIBE
     Dosage: 10 MG,QD (10 MG,1-0-0-0)
     Route: 048
  19. FENTANYL [Interacting]
     Active Substance: FENTANYL
     Dosage: 50 UG, QD
     Route: 048
  20. FENTANYL [Interacting]
     Active Substance: FENTANYL
     Dosage: 50 UG, UNK
     Route: 047
  21. SPIRONOLACTONE [Interacting]
     Active Substance: SPIRONOLACTONE
     Dosage: 100 MG, QD
     Route: 048
  22. SPIRONOLACTONE [Interacting]
     Active Substance: SPIRONOLACTONE
     Dosage: 200 MG, QD
     Route: 048
  23. SPIRONOLACTONE [Interacting]
     Active Substance: SPIRONOLACTONE
     Dosage: 2 DF, QD
     Route: 048
  24. SPIRONOLACTONE [Interacting]
     Active Substance: SPIRONOLACTONE
     Dosage: 200 MG, QD,100 MG, BID (2-0-0-0)
     Route: 048
  25. SPIRONOLACTONE [Interacting]
     Active Substance: SPIRONOLACTONE
     Dosage: UNK
  26. SPIRONOLACTONE [Interacting]
     Active Substance: SPIRONOLACTONE
     Dosage: 200 MG, BID (EVERY 12 HOURS)
     Route: 048
  27. SPIRONOLACTONE [Interacting]
     Active Substance: SPIRONOLACTONE
     Dosage: 200 MILLIGRAM, BID
     Route: 048
  28. URSODIOL [Interacting]
     Active Substance: URSODIOL
     Dosage: 500 MG, BID
     Route: 048
  29. URSODIOL [Interacting]
     Active Substance: URSODIOL
     Dosage: 1000 MILLIGRAM, QD
     Route: 048
  30. FLUTICASONE PROPIONATE\SALMETEROL XINAFOATE [Interacting]
     Active Substance: FLUTICASONE PROPIONATE\SALMETEROL XINAFOATE
     Dosage: 1 DF, 1X/DAY(RESPIRATORY (INHALATION)50|500 UG, 1-0-1-0 )
     Route: 055
  31. FLUTICASONE PROPIONATE\SALMETEROL XINAFOATE [Interacting]
     Active Substance: FLUTICASONE PROPIONATE\SALMETEROL XINAFOATE
     Dosage: 2 DF, QD, 50|500 UG,
     Route: 055
  32. FLUTICASONE PROPIONATE\SALMETEROL XINAFOATE [Interacting]
     Active Substance: FLUTICASONE PROPIONATE\SALMETEROL XINAFOATE
     Dosage: 1 DF, QD
     Route: 055
  33. FLUTICASONE PROPIONATE\SALMETEROL XINAFOATE [Interacting]
     Active Substance: FLUTICASONE PROPIONATE\SALMETEROL XINAFOATE
     Dosage: UNK UNK, QD
     Route: 055
  34. AZATHIOPRINE [Interacting]
     Active Substance: AZATHIOPRINE
     Dosage: 50 MG, QD
     Route: 048
  35. AZATHIOPRINE [Interacting]
     Active Substance: AZATHIOPRINE
     Dosage: 50 MG, UNK
     Route: 048
  36. ESIDRIX [Interacting]
     Active Substance: HYDROCHLOROTHIAZIDE
     Dosage: 25 MG, QD (1-0-0-0)
     Route: 048
  37. METAMIZOLE [Interacting]
     Active Substance: METAMIZOLE
     Dosage: 30 TROPFEN, 1-1-1-0
     Route: 048
  38. METAMIZOLE [Interacting]
     Active Substance: METAMIZOLE
     Dosage: 30 OT, TID (30 TROPFEN, 1-1-1-0)
     Route: 048
  39. METAMIZOLE [Interacting]
     Active Substance: METAMIZOLE
     Dosage: 90 DF, QD, UNIT DOSE: 30 DROPS
     Route: 048
  40. METAMIZOLE [Interacting]
     Active Substance: METAMIZOLE
     Dosage: 30 GTT DROPS, Q8H
     Route: 048
  41. CITRIC ACID MONOHYDRATE\POTASSIUM BICARBONATE\POTASSIUM CITRATE [Interacting]
     Active Substance: CITRIC ACID MONOHYDRATE\POTASSIUM BICARBONATE\POTASSIUM CITRATE
     Dosage: 100 MG,QD(1-0-0-0)
     Route: 048
  42. CITRIC ACID MONOHYDRATE\POTASSIUM BICARBONATE\POTASSIUM CITRATE [Interacting]
     Active Substance: CITRIC ACID MONOHYDRATE\POTASSIUM BICARBONATE\POTASSIUM CITRATE
     Dosage: UNK
     Route: 048
  43. CITRIC ACID MONOHYDRATE\POTASSIUM BICARBONATE\POTASSIUM CITRATE [Interacting]
     Active Substance: CITRIC ACID MONOHYDRATE\POTASSIUM BICARBONATE\POTASSIUM CITRATE
     Dosage: 100 MILLIGRAM, QD
     Route: 048
  44. AMBROXOL HYDROCHLORIDE [Interacting]
     Active Substance: AMBROXOL HYDROCHLORIDE
     Dosage: 30 GTT, AS NEEDED (REQUIREMENT, BEDARFAS NECESSARY)
     Route: 048
  45. MAGNESIUM [Interacting]
     Active Substance: MAGNESIUM
     Dosage: 2 DF, DAILY(2-0-0-0)
     Route: 048
  46. MAGNESIUM [Interacting]
     Active Substance: MAGNESIUM
     Dosage: 1 DF, QD
  47. MAGNESIUM [Interacting]
     Active Substance: MAGNESIUM
     Dosage: UNK UNK, QD
     Route: 048
  48. BENSERAZIDE\LEVODOPA [Interacting]
     Active Substance: BENSERAZIDE\LEVODOPA
     Dosage: 100 MG, QD (1-0-2.5-0)
     Route: 048
  49. BENSERAZIDE\LEVODOPA [Interacting]
     Active Substance: BENSERAZIDE\LEVODOPA
     Dosage: 100 MG, EVERY 12 HOURS, BID
     Route: 048
  50. MAGNESIUM [Interacting]
     Active Substance: MAGNESIUM
     Dosage: BID
     Route: 048
  51. MAGNESIUM [Interacting]
     Active Substance: MAGNESIUM
     Dosage: 1 DF, QD
     Route: 048
  52. MAGNESIUM [Interacting]
     Active Substance: MAGNESIUM
     Dosage: 2 OT, QD
     Route: 048
  53. MAGNESIUM [Interacting]
     Active Substance: MAGNESIUM
     Dosage: 2 DF, 1X/DAY
     Route: 048
  54. ACETAMINOPHEN\CAFFEINE\PROPYPHENAZONE [Interacting]
     Active Substance: ACETAMINOPHEN\CAFFEINE\PROPYPHENAZONE
     Dosage: QD
     Route: 048
  55. ACETAMINOPHEN\CAFFEINE\PROPYPHENAZONE [Interacting]
     Active Substance: ACETAMINOPHEN\CAFFEINE\PROPYPHENAZONE
     Dosage: UNK, TID
     Route: 048
  56. ACETAMINOPHEN\CAFFEINE\PROPYPHENAZONE [Interacting]
     Active Substance: ACETAMINOPHEN\CAFFEINE\PROPYPHENAZONE
     Dosage: 30 GTT, Q8HR
     Route: 048
  57. ACETAMINOPHEN\CAFFEINE\PROPYPHENAZONE [Interacting]
     Active Substance: ACETAMINOPHEN\CAFFEINE\PROPYPHENAZONE
     Dosage: 30 GTT DROPS, TID
     Route: 048
  58. ACETAMINOPHEN\CAFFEINE\PROPYPHENAZONE [Interacting]
     Active Substance: ACETAMINOPHEN\CAFFEINE\PROPYPHENAZONE
     Dosage: 30 GTT, Q8HR
     Route: 048
  59. MAGNESIUM [Interacting]
     Active Substance: MAGNESIUM
     Dosage: UNK UNK, BID
     Route: 048
  60. MAGNESIUM [Interacting]
     Active Substance: MAGNESIUM
     Dosage: 2 DF, 2X/DAY
     Route: 048
  61. ACETAMINOPHEN\PENTAZOCINE HYDROCHLORIDE [Interacting]
     Active Substance: ACETAMINOPHEN\PENTAZOCINE HYDROCHLORIDE
     Dosage: 1 DF, QD
     Route: 048
  62. ACETAMINOPHEN\PENTAZOCINE HYDROCHLORIDE [Interacting]
     Active Substance: ACETAMINOPHEN\PENTAZOCINE HYDROCHLORIDE
     Dosage: 90 DF, QD, UNIT DOSE: 30 DROPS
     Route: 048
  63. ACETAMINOPHEN\PENTAZOCINE HYDROCHLORIDE [Interacting]
     Active Substance: ACETAMINOPHEN\PENTAZOCINE HYDROCHLORIDE
     Dosage: UNK UNK, QD
     Route: 048
  64. ALUMINUM HYDROXIDE\MAGNESIUM HYDROXIDE [Interacting]
     Active Substance: ALUMINUM HYDROXIDE\MAGNESIUM HYDROXIDE
     Dosage: 2 DF, QD
     Route: 048
  65. POTASSIUM CHLORIDE [Interacting]
     Active Substance: POTASSIUM CHLORIDE
     Dosage: 100 MG, QD
     Route: 048
  66. POTASSIUM CHLORIDE [Interacting]
     Active Substance: POTASSIUM CHLORIDE
     Dosage: 100 MG, QD (1-0-0-0)
     Route: 048
  67. ACETAMINOPHEN [Interacting]
     Active Substance: ACETAMINOPHEN
     Dosage: 90 DF, QD
     Route: 048
  68. ACETAMINOPHEN [Interacting]
     Active Substance: ACETAMINOPHEN
     Dosage: 30 GTT DROPS, TID
     Route: 048
  69. ACETAMINOPHEN [Interacting]
     Active Substance: ACETAMINOPHEN
     Dosage: UNK UNK, QD
     Route: 048
  70. PENTAZOCINE HYDROCHLORIDE [Suspect]
     Active Substance: PENTAZOCINE HYDROCHLORIDE
     Dosage: UNK UNK, QD
     Route: 048
  71. PENTAZOCINE HYDROCHLORIDE [Suspect]
     Active Substance: PENTAZOCINE HYDROCHLORIDE
     Dosage: 30 GTT DROPS, TID
     Route: 048
  72. PENTAZOCINE HYDROCHLORIDE [Suspect]
     Active Substance: PENTAZOCINE HYDROCHLORIDE
     Dosage: UNK UNK, 1X/DAY
     Route: 048

REACTIONS (3)
  - Product prescribing error [Unknown]
  - Drug interaction [Unknown]
  - General physical health deterioration [Unknown]

NARRATIVE: CASE EVENT DATE: 20150916
